FAERS Safety Report 6248733-9 (Version None)
Quarter: 2009Q2

REPORT INFORMATION
  Report Type: 
  Country: None (occurrence: None)
  Receive Date: 20090629
  Receipt Date: 20090617
  Transmission Date: 20091009
  Serious: Yes (Other)
  Sender: FDA-Public Use
  Company Number: PHEH2009US06382

PATIENT
  Sex: Female

DRUGS (1)
  1. EXJADE [Suspect]
     Dosage: 2000 MG, QD
     Route: 048
     Dates: start: 20060622, end: 20090617

REACTIONS (2)
  - DYSPHAGIA [None]
  - OESOPHAGEAL DILATATION [None]
